FAERS Safety Report 14861796 (Version 1)
Quarter: 2018Q2

REPORT INFORMATION
  Report Type: Spontaneous
  Country: US (occurrence: US)
  Receive Date: 20180508
  Receipt Date: 20180508
  Transmission Date: 20180711
  Serious: No
  Sender: FDA-Public Use
  Company Number: US-VIFOR (INTERNATIONAL) INC.-VIT-2017-14488

PATIENT
  Age: 67 Year
  Sex: Male

DRUGS (19)
  1. HYDRALAZINE [Concomitant]
     Active Substance: HYDRALAZINE HYDROCHLORIDE
  2. ISOSORBIDE MONONITRATE. [Concomitant]
     Active Substance: ISOSORBIDE MONONITRATE
  3. TAMSULOSIN [Concomitant]
     Active Substance: TAMSULOSIN
  4. ARANESP [Concomitant]
     Active Substance: DARBEPOETIN ALFA
  5. LIQUACEL [Concomitant]
  6. METOPROLOL TARTRATE. [Concomitant]
     Active Substance: METOPROLOL TARTRATE
  7. NEPHELEX [Concomitant]
  8. AMLODIPINE [Concomitant]
     Active Substance: AMLODIPINE BESYLATE
  9. LIPITOR [Concomitant]
     Active Substance: ATORVASTATIN CALCIUM
  10. AMMONIUM LACTATE. [Concomitant]
     Active Substance: AMMONIUM LACTATE
  11. MECLIZINE [Concomitant]
     Active Substance: MECLIZINE HYDROCHLORIDE
  12. MELATONIN [Concomitant]
     Active Substance: MELATONIN
  13. RENVELA [Concomitant]
     Active Substance: SEVELAMER CARBONATE
  14. LANTUS [Concomitant]
     Active Substance: INSULIN GLARGINE
  15. VELTASSA [Suspect]
     Active Substance: PATIROMER
     Indication: HYPERKALAEMIA
     Route: 048
     Dates: start: 20170531
  16. ATORVASTATIN [Concomitant]
     Active Substance: ATORVASTATIN
  17. HECTOROL [Concomitant]
     Active Substance: DOXERCALCIFEROL
  18. PEPCID [Concomitant]
     Active Substance: FAMOTIDINE
  19. TOPROL XL [Concomitant]
     Active Substance: METOPROLOL SUCCINATE

REACTIONS (2)
  - No adverse event [Recovered/Resolved]
  - Drug dose omission [Unknown]

NARRATIVE: CASE EVENT DATE: 20171217
